FAERS Safety Report 18455923 (Version 1)
Quarter: 2020Q4

REPORT INFORMATION
  Report Type: Report from Study
  Country: US (occurrence: US)
  Receive Date: 20201103
  Receipt Date: 20201103
  Transmission Date: 20210114
  Serious: No
  Sender: FDA-Public Use
  Company Number: NVSC2020US292304

PATIENT
  Age: 22 Year
  Sex: Female

DRUGS (1)
  1. GLATOPA [Suspect]
     Active Substance: GLATIRAMER ACETATE
     Indication: HYPERSENSITIVITY
     Dosage: 40 MG, TIW
     Route: 065
     Dates: start: 20201028, end: 20201029

REACTIONS (3)
  - Injection site erythema [Unknown]
  - Injection site hypersensitivity [Unknown]
  - Injection site pruritus [Unknown]

NARRATIVE: CASE EVENT DATE: 20201028
